FAERS Safety Report 9205999 (Version 2)
Quarter: 2014Q1

REPORT INFORMATION
  Report Type: Spontaneous
  Country: US (occurrence: US)
  Receive Date: 20130403
  Receipt Date: 20140203
  Transmission Date: 20141002
  Serious: Yes (Hospitalization, Other)
  Sender: FDA-Public Use
  Company Number: US-BAYER-2013-039745

PATIENT
  Age: 19 Year
  Sex: Female

DRUGS (12)
  1. YAZ [Suspect]
     Dosage: UNK
     Dates: start: 201108, end: 201201
  2. YASMIN [Suspect]
     Dosage: UNK
     Dates: start: 201108, end: 201201
  3. OCELLA [Suspect]
     Dosage: UNK
     Dates: start: 201108, end: 201201
  4. GIANVI [Suspect]
     Dosage: UNK
     Dates: start: 201108, end: 201201
  5. DIAZEPAM [Concomitant]
     Indication: PAIN MANAGEMENT
     Dosage: 10 MG, UNK
     Route: 048
     Dates: start: 20111215
  6. PENICILLINA K [PHENOXYMETHYLPENICILLIN POTASSIUM] [Concomitant]
     Dosage: 500 MG, UNK
     Route: 048
     Dates: start: 20111220
  7. IBUPROFEN [Concomitant]
     Dosage: 800 MG, UNK
     Route: 048
     Dates: start: 20111220
  8. OXYCODONE/APAP [Concomitant]
     Indication: PAIN MANAGEMENT
     Dosage: 5-325 MG, UNK
     Route: 048
     Dates: start: 20111220
  9. ERYTHROMYCIN [Concomitant]
     Dosage: 250 MG, UNK
     Route: 048
     Dates: start: 20111222
  10. ALLERGY RELIEF MEDICINE [Concomitant]
     Dosage: 10 MG, UNK
     Route: 048
     Dates: start: 20120113
  11. PREDNISONE [Concomitant]
     Dosage: 20 MG, UNK
     Route: 048
     Dates: start: 20120113
  12. FLEXERIL [Concomitant]
     Dosage: UNK
     Route: 048

REACTIONS (6)
  - Cholecystectomy [None]
  - Cholecystitis chronic [None]
  - Pain [None]
  - Injury [None]
  - Anxiety [None]
  - Anhedonia [None]
